FAERS Safety Report 7514038-9 (Version None)
Quarter: 2011Q2

REPORT INFORMATION
  Report Type: 
  Country: None (occurrence: None)
  Receive Date: 20110531
  Receipt Date: 20100208
  Transmission Date: 20111010
  Serious: No
  Sender: FDA-Public Use
  Company Number: US-BAYER-201013707NA

PATIENT
  Sex: Male

DRUGS (6)
  1. MIDRIN [Concomitant]
  2. PREDNISONE [Concomitant]
     Indication: NECK INJURY
     Dosage: UNK
     Dates: start: 20100201
  3. NASONEX [Concomitant]
  4. PREDNISONE [Concomitant]
     Indication: PROPHYLAXIS
  5. IBUPROFEN [Concomitant]
  6. AVELOX [Suspect]
     Indication: INFECTION PROPHYLAXIS
     Dosage: UNK
     Dates: start: 20100101, end: 20100210

REACTIONS (9)
  - DIZZINESS [None]
  - ARTHRALGIA [None]
  - BACK DISORDER [None]
  - HEADACHE [None]
  - DIARRHOEA [None]
  - CONFUSIONAL STATE [None]
  - JOINT INJURY [None]
  - NAUSEA [None]
  - NECK INJURY [None]
